FAERS Safety Report 7949074-1 (Version None)
Quarter: 2011Q4

REPORT INFORMATION
  Report Type: 
  Country: None (occurrence: None)
  Receive Date: 20111130
  Receipt Date: 20110920
  Transmission Date: 20120403
  Serious: No
  Sender: FDA-Public Use
  Company Number: US-BRISTOL-MYERS SQUIBB COMPANY-16020133

PATIENT
  Age: 56 Year
  Sex: Female

DRUGS (5)
  1. KOMBIGLYZE XR [Suspect]
     Indication: DIABETES MELLITUS
     Dosage: 1 DOSAGE FORM = 25/1000MG.
     Route: 048
     Dates: start: 20110523
  2. SINGULAIR [Concomitant]
  3. BENICAR [Concomitant]
  4. VITAMIN D [Concomitant]
     Dosage: 50000 UNITS/ WIC
  5. SYNTHROID [Concomitant]

REACTIONS (1)
  - RENAL IMPAIRMENT [None]
